FAERS Safety Report 9881264 (Version 2)
Quarter: 2014Q1

REPORT INFORMATION
  Report Type: Other
  Country: FR (occurrence: FR)
  Receive Date: 20140207
  Receipt Date: 20140328
  Transmission Date: 20141002
  Serious: Yes (Hospitalization, Other)
  Sender: FDA-Public Use
  Company Number: FR-TAKEDA-2014JNJ000293

PATIENT
  Sex: 0

DRUGS (17)
  1. VELCADE [Suspect]
     Indication: AMYLOIDOSIS
     Dosage: 1.3 MG/M2, CYCLIC
     Route: 042
     Dates: start: 20130805, end: 20131223
  2. ENDOXAN [Suspect]
     Indication: AMYLOIDOSIS
     Dosage: 500 MG, CYCLIC
     Route: 048
     Dates: start: 20130805, end: 20131223
  3. DEXAMETHASONE [Suspect]
     Indication: AMYLOIDOSIS
     Dosage: 40 MG, CYCLIC
     Route: 042
     Dates: start: 20130805, end: 20131224
  4. LIPANTHYL [Concomitant]
  5. JANUVIA [Concomitant]
  6. GAVISCON                           /00237601/ [Concomitant]
  7. REBETOL [Concomitant]
  8. PEGASYS [Concomitant]
  9. BACTRIM [Concomitant]
     Indication: PROPHYLAXIS
  10. VALTREX [Concomitant]
     Indication: PROPHYLAXIS
  11. ZELITREX [Concomitant]
     Indication: PROPHYLAXIS
  12. CYMEVAN [Concomitant]
     Indication: CYTOMEGALOVIRUS COLITIS
  13. ROVALCYTE [Concomitant]
     Indication: CYTOMEGALOVIRUS COLITIS
  14. ALINIA [Concomitant]
     Indication: DIARRHOEA
  15. VANCOMYCIN [Concomitant]
     Indication: CLOSTRIDIUM COLITIS
  16. TAZOCILLINE [Concomitant]
     Indication: BRONCHITIS
  17. FORTUM                             /00559701/ [Concomitant]
     Indication: BRONCHITIS

REACTIONS (2)
  - Kaposi^s sarcoma [Not Recovered/Not Resolved]
  - Off label use [Unknown]
